FAERS Safety Report 6593001-9 (Version None)
Quarter: 2010Q1

REPORT INFORMATION
  Report Type: 
  Country: None (occurrence: None)
  Receive Date: 20100212
  Receipt Date: 20100125
  Transmission Date: 20100710
  Serious: Yes (Hospitalization)
  Sender: FDA-Public Use
  Company Number: CLOF1000621

PATIENT
  Age: 66 Year
  Sex: Female
  Weight: 64 kg

DRUGS (16)
  1. EVOLTRA (CLOFARABINE) SOLUTION FOR INFUSION [Suspect]
     Indication: ACUTE MYELOID LEUKAEMIA
     Dosage: 34 MG, QDX5, INTRAVENOUS, 32 MG, QDX5, INTRAVENOUS
     Route: 042
     Dates: start: 20090513, end: 20090517
  2. EVOLTRA (CLOFARABINE) SOLUTION FOR INFUSION [Suspect]
     Indication: ACUTE MYELOID LEUKAEMIA
     Dosage: 34 MG, QDX5, INTRAVENOUS, 32 MG, QDX5, INTRAVENOUS
     Route: 042
     Dates: start: 20090617, end: 20090621
  3. DAUNORUBICIN HCL [Suspect]
     Indication: ACUTE MYELOID LEUKAEMIA
     Dosage: 85 MG, QOD, INTRAVENOUS, 80 MG, QOD, INTRAVENOUS
     Route: 042
     Dates: start: 20090513, end: 20090517
  4. DAUNORUBICIN HCL [Suspect]
     Indication: ACUTE MYELOID LEUKAEMIA
     Dosage: 85 MG, QOD, INTRAVENOUS, 80 MG, QOD, INTRAVENOUS
     Route: 042
     Dates: start: 20090617, end: 20090621
  5. MYLOTARG [Suspect]
     Indication: ACUTE MYELOID LEUKAEMIA
     Dosage: 5 MG, ONCE, ITRAVENOUS
     Route: 042
     Dates: start: 20090513, end: 20090513
  6. HYDROXYCARBAMIDE (HYDROXYCARBAMIDE) ORAL SOLUTION [Concomitant]
  7. ATENOLOL (ATENOLOL) ORAL SOLUTION [Concomitant]
  8. VANCOMYCIN [Concomitant]
  9. FLUCLOXACILLIN (FLUCLOXACILLIN) ORAL SOULTION [Concomitant]
  10. ADIPINE (NIFEDIPINE) ORAL SOLUTION [Concomitant]
  11. ASPIRIN (SALICYLAMIDE) ORAL SOLUTION [Concomitant]
  12. SIMVASTATIN (SIMVASTATIN) ORAL SOLUTION [Concomitant]
  13. ONDANSETRON (ONDANSETRON) ORAL SOLUTION [Concomitant]
  14. LOPERAMIDE (LOPERAMIDE OXIDE) ORAL SOLUTION [Concomitant]
  15. CYCLIZINE (CYCLIZINE) INTRAVENOUS INFUSION [Concomitant]
  16. MEROPENEM [Concomitant]

REACTIONS (20)
  - BLOOD BILIRUBIN INCREASED [None]
  - BLOOD CULTURE POSITIVE [None]
  - BLOOD MAGNESIUM DECREASED [None]
  - BLOOD SODIUM DECREASED [None]
  - CANDIDIASIS [None]
  - CHOLELITHIASIS [None]
  - CLOSTRIDIUM DIFFICILE COLITIS [None]
  - DEVICE RELATED INFECTION [None]
  - DIARRHOEA [None]
  - ELECTROLYTE IMBALANCE [None]
  - FEBRILE NEUTROPENIA [None]
  - FLANK PAIN [None]
  - FOLLICULITIS [None]
  - HERPES SIMPLEX [None]
  - HYPOKALAEMIA [None]
  - KLEBSIELLA INFECTION [None]
  - PSEUDOMONAS INFECTION [None]
  - RENAL TUBULAR DISORDER [None]
  - SPUTUM CULTURE POSITIVE [None]
  - STREPTOCOCCAL INFECTION [None]
